FAERS Safety Report 9818567 (Version 1)
Quarter: 2013Q4

REPORT INFORMATION
  Report Type: Spontaneous
  Country: US (occurrence: None)
  Receive Date: 20131223
  Receipt Date: 20131223
  Transmission Date: 20140711
  Serious: No
  Sender: FDA-Public Use
  Company Number: 221831

PATIENT
  Sex: Female

DRUGS (4)
  1. PICATO GEL [Suspect]
     Indication: ACTINIC KERATOSIS
     Route: 061
  2. SYNTHROID (LEVOTHYROXINE SODIUM) [Concomitant]
  3. HYZAAN (HYDROCHLOROTHIAZIDE W/LOSARTAN) [Concomitant]
  4. ZILTA (PIROXICAM CINNAMATE) [Concomitant]

REACTIONS (3)
  - Application site inflammation [None]
  - Application site erythema [None]
  - Application site exfoliation [None]
